FAERS Safety Report 19076081 (Version 4)
Quarter: 2021Q2

REPORT INFORMATION
  Report Type: Spontaneous
  Country: JP (occurrence: JP)
  Receive Date: 20210331
  Receipt Date: 20210428
  Transmission Date: 20210717
  Serious: Yes (Other)
  Sender: FDA-Public Use
  Company Number: JP-SAKK-2021SA101688AA

PATIENT
  Age: 59 Year
  Sex: Male
  Weight: 61 kg

DRUGS (9)
  1. KEVZARA [Suspect]
     Active Substance: SARILUMAB
     Indication: RHEUMATOID ARTHRITIS
     Dosage: 200 MG, QOW
     Route: 058
     Dates: start: 20210120, end: 20210317
  2. FOLIAMIN NICHIYAKU [Concomitant]
     Indication: PROPHYLAXIS
     Dosage: 5 MG, QW
     Route: 048
  3. DAIPHEN [Concomitant]
     Active Substance: SULFAMETHOXAZOLE\TRIMETHOPRIM
     Indication: PROPHYLAXIS
     Dosage: 1 DF, BID
     Route: 048
  4. CALONAL [Concomitant]
     Active Substance: ACETAMINOPHEN
     Indication: RHEUMATOID ARTHRITIS
     Dosage: UNK UNK, PRN
     Route: 048
  5. RIMATIL [Suspect]
     Active Substance: BUCILLAMINE
     Indication: RHEUMATOID ARTHRITIS
     Dosage: 100 MG, BID
     Route: 048
  6. BENET [Concomitant]
     Active Substance: RISEDRONATE SODIUM
     Indication: OSTEOPOROSIS
     Dosage: 75 MG, QM
     Route: 048
     Dates: start: 20200730
  7. METHOTREXATE. [Suspect]
     Active Substance: METHOTREXATE
     Indication: RHEUMATOID ARTHRITIS
     Dosage: 12 MG, QW
     Route: 048
  8. TOARASET [Concomitant]
     Active Substance: ACETAMINOPHEN\TRAMADOL HYDROCHLORIDE
     Indication: RHEUMATOID ARTHRITIS
     Dosage: 1 DF, TID
     Route: 048
  9. PREDNISOLONE. [Suspect]
     Active Substance: PREDNISOLONE
     Indication: RHEUMATOID ARTHRITIS
     Dosage: 2.5 MG, QD
     Route: 048

REACTIONS (9)
  - Auricular swelling [Recovering/Resolving]
  - Erythema [Recovering/Resolving]
  - Pain [Recovering/Resolving]
  - Facial paralysis [Not Recovered/Not Resolved]
  - Eyelid ptosis [Not Recovered/Not Resolved]
  - Lid lag [Not Recovered/Not Resolved]
  - Swelling face [Recovering/Resolving]
  - Herpes zoster [Recovering/Resolving]
  - Swelling [Recovering/Resolving]

NARRATIVE: CASE EVENT DATE: 20210312
